FAERS Safety Report 9720086 (Version 3)
Quarter: 2014Q1

REPORT INFORMATION
  Report Type: Spontaneous
  Country: US (occurrence: US)
  Receive Date: 20131128
  Receipt Date: 20140207
  Transmission Date: 20141002
  Serious: No
  Sender: FDA-Public Use
  Company Number: US-009507513-1311USA011768

PATIENT
  Sex: Female

DRUGS (6)
  1. REBETOL [Suspect]
     Indication: HEPATITIS C
     Dosage: BID
     Route: 048
     Dates: start: 20131123
  2. PEGINTRON [Suspect]
     Indication: HEPATITIS C
     Dosage: REDIPEN, 150 MICROGRAM, QW
     Route: 058
     Dates: start: 20131123
  3. Z-PAK [Concomitant]
     Dosage: ONE PILL DAILY
  4. SOVALDI [Concomitant]
     Dosage: 1 PILL DAILY
  5. TYLENOL [Concomitant]
     Dosage: ONE Q 6 TO 8 HOURS
  6. PROVENTIL [Concomitant]
     Dosage: PUMPS, UP TO 3 TIMES DAILY, NEBULIZED THERAPY

REACTIONS (6)
  - Back pain [Unknown]
  - Migraine [Unknown]
  - Chills [Unknown]
  - Pneumonia [Unknown]
  - Pyrexia [Not Recovered/Not Resolved]
  - Injection site rash [Unknown]
